FAERS Safety Report 5127206-0 (Version None)
Quarter: 2006Q4

REPORT INFORMATION
  Report Type: 
  Country: None (occurrence: None)
  Receive Date: 20061013
  Receipt Date: 20061005
  Transmission Date: 20070319
  Serious: Yes (Hospitalization)
  Sender: FDA-Public Use
  Company Number: US-BOEHRINGER INGELHEIM PHARMACEUTICALS, INC.-2006-BP-11694BP

PATIENT
  Sex: Female
  Weight: 83.01 kg

DRUGS (4)
  1. MOBIC [Suspect]
     Route: 048
  2. BYETTA [Suspect]
     Indication: DIABETES MELLITUS NON-INSULIN-DEPENDENT
     Route: 058
     Dates: start: 20060512, end: 20060610
  3. BYETTA [Suspect]
     Route: 058
     Dates: start: 20060611
  4. AMARYL [Concomitant]

REACTIONS (5)
  - CHEST PAIN [None]
  - MUSCULOSKELETAL PAIN [None]
  - NAUSEA [None]
  - PAIN IN EXTREMITY [None]
  - VOMITING [None]
